FAERS Safety Report 18848977 (Version 1)
Quarter: 2021Q1

REPORT INFORMATION
  Report Type: Spontaneous
  Country: IT (occurrence: IT)
  Receive Date: 20210205
  Receipt Date: 20210205
  Transmission Date: 20210419
  Serious: Yes (Other)
  Sender: FDA-Public Use
  Company Number: NVSC2021IT025153

PATIENT

DRUGS (4)
  1. OXALIPLATIN. [Suspect]
     Active Substance: OXALIPLATIN
     Indication: PANCREATIC CARCINOMA METASTATIC
     Dosage: EVERY TWO WEEKS ON DAY 1 AT THE DOSE OF 85 MG/M2 A TWO?HOUR INFUSION
     Route: 041
  2. 5?FLUOROURACIL [Suspect]
     Active Substance: FLUOROURACIL
     Indication: PANCREATIC CARCINOMA METASTATIC
     Dosage: EVERY TWO WEEKS 400 MG/M2 CONTINUOUS INFUSION FOR TWO CONSECUTIVE DAYS
     Route: 041
  3. CALCIUM FOLINATE [Suspect]
     Active Substance: LEUCOVORIN CALCIUM
     Indication: PANCREATIC CARCINOMA METASTATIC
     Dosage: EVERY TWO WEEKS 200 MG/M2, QD
     Route: 042
  4. 5?FLUOROURACIL [Suspect]
     Active Substance: FLUOROURACIL
     Dosage: EVERY TWO WEEKS 600 MG/M2 CONTINUOUS INFUSION FOR TWO CONSECUTIVE DAYS
     Route: 041

REACTIONS (2)
  - Diarrhoea [Unknown]
  - Product use in unapproved indication [Unknown]
